FAERS Safety Report 9280861 (Version 1)
Quarter: 2013Q2

REPORT INFORMATION
  Report Type: Spontaneous
  Country: US (occurrence: None)
  Receive Date: 20130508
  Receipt Date: 20130508
  Transmission Date: 20140414
  Serious: Yes (Hospitalization)
  Sender: FDA-Public Use
  Company Number: None

PATIENT
  Age: 9 Year
  Sex: Female
  Weight: 31.75 kg

DRUGS (1)
  1. CEFDINIR [Suspect]
     Indication: URINARY TRACT INFECTION
     Dosage: 1 1/2 TESPOON X 10
     Route: 048
     Dates: start: 20130329, end: 20130404

REACTIONS (9)
  - Mood altered [None]
  - Decreased appetite [None]
  - Social avoidant behaviour [None]
  - Anxiety [None]
  - Suicidal ideation [None]
  - Depression [None]
  - Wheezing [None]
  - Hyperventilation [None]
  - Rhinitis allergic [None]
